FAERS Safety Report 4554317-0 (Version None)
Quarter: 2005Q1

REPORT INFORMATION
  Report Type: 
  Country: None (occurrence: None)
  Receive Date: 20050118
  Receipt Date: 20050104
  Transmission Date: 20050727
  Serious: Yes (Hospitalization)
  Sender: FDA-Public Use
  Company Number: 200510056FR

PATIENT
  Age: 64 Year
  Sex: Female

DRUGS (6)
  1. PROPOFAN/FRANCE [Suspect]
     Dosage: DOSE UNIT: UNITS
     Route: 048
     Dates: start: 20040618, end: 20041020
  2. FEXOFENADINE HCL [Suspect]
     Route: 048
     Dates: start: 20040618, end: 20041021
  3. ENDOTELON [Suspect]
     Indication: CARDIOVASCULAR DISORDER
     Dosage: DOSE UNIT: UNITS
     Route: 048
     Dates: start: 20040618, end: 20041021
  4. TENSTATEN [Suspect]
     Indication: ESSENTIAL HYPERTENSION
     Route: 048
     Dates: start: 20040618, end: 20041021
  5. CAELYX [Suspect]
     Indication: BREAST CANCER
     Route: 042
     Dates: start: 20040618, end: 20041001
  6. ZANIDIP [Suspect]
     Indication: ESSENTIAL HYPERTENSION
     Dosage: DOSE UNIT: UNITS
     Route: 048
     Dates: start: 20040618, end: 20041106

REACTIONS (1)
  - FUNGAL INFECTION [None]
